APPROVED DRUG PRODUCT: MIOCHOL
Active Ingredient: ACETYLCHOLINE CHLORIDE
Strength: 20MG/VIAL **Federal Register determination that product was not discontinued or withdrawn for safety or effectiveness reasons**
Dosage Form/Route: FOR SOLUTION;OPHTHALMIC
Application: N016211 | Product #001
Applicant: NOVARTIS PHARMACEUTICALS CORP
Approved: Approved Prior to Jan 1, 1982 | RLD: Yes | RS: No | Type: DISCN